FAERS Safety Report 9406826 (Version 2)
Quarter: 2013Q3

REPORT INFORMATION
  Report Type: Spontaneous
  Country: FR (occurrence: FR)
  Receive Date: 20130718
  Receipt Date: 20130828
  Transmission Date: 20140515
  Serious: Yes (Hospitalization)
  Sender: FDA-Public Use
  Company Number: PHHY2013FR074623

PATIENT
  Sex: Female

DRUGS (6)
  1. TOBI PODHALER [Suspect]
     Indication: PSEUDOMONAS INFECTION
     Dosage: 2 DF, BID
     Dates: start: 20120628, end: 20130128
  2. PARACETAMOL [Concomitant]
     Indication: PYREXIA
     Dosage: 1000 MG, PRN
     Route: 048
  3. SPIRIVA [Concomitant]
     Indication: RESPIRATORY DISORDER
     Dosage: 1 DF, QD
  4. PROZAC [Concomitant]
     Indication: DEPRESSION
     Dosage: 1 DF, QOD
     Route: 048
  5. INEXIUM [Concomitant]
     Indication: GASTROOESOPHAGEAL REFLUX DISEASE
     Dosage: 2 DF, QD
     Route: 048
  6. AZITHROMYCINE [Concomitant]
     Indication: BRONCHITIS
     Dosage: 250 MG, 5 DAYS WEEKLY
     Route: 048

REACTIONS (3)
  - Renal failure [Recovered/Resolved]
  - Influenza [Unknown]
  - Respiratory disorder [Unknown]
